FAERS Safety Report 7396451-6 (Version None)
Quarter: 2011Q2

REPORT INFORMATION
  Report Type: 
  Country: None (occurrence: None)
  Receive Date: 20110406
  Receipt Date: 20110209
  Transmission Date: 20111010
  Serious: Yes (Hospitalization, Other)
  Sender: FDA-Public Use
  Company Number: US-BAYER-200935602NA

PATIENT
  Sex: Female
  Weight: 73 kg

DRUGS (3)
  1. NSAID'S [Concomitant]
  2. YAZ [Suspect]
     Indication: ORAL CONTRACEPTION
     Route: 048
     Dates: start: 20090301, end: 20090501
  3. WELLBUTRIN [Concomitant]

REACTIONS (3)
  - HYPOVOLAEMIC SHOCK [None]
  - PANCREATITIS ACUTE [None]
  - PANCREATIC INJURY [None]
